FAERS Safety Report 9090411 (Version 5)
Quarter: 2013Q1

REPORT INFORMATION
  Report Type: Spontaneous
  Country: JP (occurrence: JP)
  Receive Date: 20130201
  Receipt Date: 20130313
  Transmission Date: 20140127
  Serious: Yes (Hospitalization, Other)
  Sender: FDA-Public Use
  Company Number: JP-PFIZER INC-2013039614

PATIENT
  Age: 72 Year
  Sex: Female
  Weight: 54 kg

DRUGS (9)
  1. SOLANAX [Suspect]
     Indication: ANXIOLYTIC THERAPY
     Dosage: 0.4 MG, 1X/DAY
     Route: 048
     Dates: start: 201112, end: 20120508
  2. JZOLOFT [Suspect]
     Dosage: UNK
     Dates: end: 201204
  3. MEILAX [Suspect]
     Indication: ANXIOLYTIC THERAPY
     Dosage: 1 MG, 3X/DAY
     Route: 048
     Dates: end: 20120507
  4. MEILAX [Suspect]
     Dosage: 1.5 MG/DAY
     Route: 048
     Dates: start: 20120508, end: 20120513
  5. ROHYPNOL [Suspect]
     Indication: INSOMNIA
     Dosage: 1 MG, 1X/DAY
     Route: 048
     Dates: end: 20120507
  6. ROHYPNOL [Suspect]
     Dosage: 0.5 MG, 1X/DAY
     Route: 048
     Dates: start: 20120508, end: 20120513
  7. GRAMALIL [Suspect]
     Dosage: 25 MG, 3X/DAY
     Route: 048
     Dates: end: 20120508
  8. BROTIZOLAM [Suspect]
     Indication: INSOMNIA
     Dosage: 0.25 MG, 1X/DAY
     Route: 048
  9. LUVOX [Suspect]
     Dosage: UNK
     Dates: end: 201204

REACTIONS (1)
  - Dysuria [Recovering/Resolving]
